FAERS Safety Report 6412940-2 (Version None)
Quarter: 2009Q4

REPORT INFORMATION
  Report Type: 
  Country: None (occurrence: None)
  Receive Date: 20091023
  Receipt Date: 20091013
  Transmission Date: 20100525
  Serious: Yes (Other)
  Sender: FDA-Public Use
  Company Number: JP-JNJCH-2009027333

PATIENT
  Sex: Female

DRUGS (1)
  1. NATURAL CITRUS LISTERINE [Suspect]
     Indication: DENTAL DISORDER PROPHYLAXIS
     Dosage: TEXT:ONCE
     Route: 048
     Dates: start: 20091009, end: 20091009

REACTIONS (4)
  - BACK PAIN [None]
  - CARDIAC DISCOMFORT [None]
  - FEELING ABNORMAL [None]
  - HYPOAESTHESIA ORAL [None]
